FAERS Safety Report 4674174-1 (Version None)
Quarter: 2005Q2

REPORT INFORMATION
  Report Type: 
  Country: None (occurrence: None)
  Receive Date: 20050524
  Receipt Date: 20050518
  Transmission Date: 20051028
  Serious: Yes (Death, Other)
  Sender: FDA-Public Use
  Company Number: USA-2005-0019943

PATIENT
  Age: 41 Year
  Sex: Male

DRUGS (2)
  1. PALLADONE [Suspect]
     Dosage: UNK
     Route: 065
  2. DIAZEPAM [Concomitant]

REACTIONS (4)
  - DRUG ABUSER [None]
  - DRUG SCREEN POSITIVE [None]
  - INTENTIONAL MISUSE [None]
  - RESPIRATORY DEPRESSION [None]
